FAERS Safety Report 8002812-4 (Version None)
Quarter: 2011Q4

REPORT INFORMATION
  Report Type: 
  Country: None (occurrence: None)
  Receive Date: 20111222
  Receipt Date: 20101130
  Transmission Date: 20120403
  Serious: No
  Sender: FDA-Public Use
  Company Number: US-GLAXOSMITHKLINE-A0888814A

PATIENT
  Age: 62 Year
  Sex: Male

DRUGS (5)
  1. WELLBUTRIN [Concomitant]
  2. FLOMAX [Concomitant]
  3. PREDNISONE TAB [Concomitant]
  4. ZOLOFT [Concomitant]
  5. AVODART [Suspect]
     Indication: MICTURITION DISORDER
     Dosage: 1CAP PER DAY
     Route: 048
     Dates: start: 20100401, end: 20100601

REACTIONS (2)
  - RASH [None]
  - DRUG INEFFECTIVE [None]
